FAERS Safety Report 9928788 (Version 1)
Quarter: 2014Q1

REPORT INFORMATION
  Report Type: Spontaneous
  Country: FR (occurrence: FR)
  Receive Date: 20140227
  Receipt Date: 20140227
  Transmission Date: 20141002
  Serious: Yes (Hospitalization)
  Sender: FDA-Public Use
  Company Number: FR-PFIZER INC-2014054344

PATIENT
  Age: 92 Year
  Sex: Female

DRUGS (5)
  1. TRIATEC [Suspect]
     Indication: HYPERTENSION
     Dosage: 2.5 MG, 4X/DAY
     Route: 048
     Dates: start: 20131113
  2. CALCIPARINE [Suspect]
     Dosage: 0.8 ML, 2X/DAY
     Route: 058
     Dates: start: 20131122
  3. KEPPRA [Suspect]
     Indication: EPILEPSY
     Dosage: 250 MG, 2X/DAY
     Route: 048
     Dates: start: 20131113
  4. DIGOXINE NATIVELLE [Suspect]
     Indication: ATRIAL FIBRILLATION
     Dosage: 0.75 MG, SINGLE
     Route: 042
     Dates: start: 20131122, end: 20131122
  5. DIGOXINE NATIVELLE [Suspect]
     Indication: ARRHYTHMIA

REACTIONS (2)
  - Hepatic failure [Recovered/Resolved]
  - Hepatocellular injury [Recovered/Resolved]
